FAERS Safety Report 17777566 (Version 1)
Quarter: 2020Q2

REPORT INFORMATION
  Report Type: Spontaneous
  Country: IT (occurrence: IT)
  Receive Date: 20200513
  Receipt Date: 20200513
  Transmission Date: 20200714
  Serious: Yes (Hospitalization)
  Sender: FDA-Public Use
  Company Number: NVSC2020IT127932

PATIENT
  Age: 9 Month

DRUGS (1)
  1. PIPERACILLIN,TAZOBACTAM [Suspect]
     Active Substance: PIPERACILLIN SODIUM\TAZOBACTAM SODIUM
     Indication: PRODUCT USED FOR UNKNOWN INDICATION
     Dosage: 1250 MG, UNKNOWN
     Route: 042

REACTIONS (3)
  - Medication error [Recovered/Resolved]
  - Peripheral swelling [Recovered/Resolved]
  - Injection site extravasation [Recovered/Resolved]
